FAERS Safety Report 7949707-X (Version None)
Quarter: 2011Q4

REPORT INFORMATION
  Report Type: 
  Country: None (occurrence: None)
  Receive Date: 20111130
  Receipt Date: 20111123
  Transmission Date: 20120403
  Serious: Yes (Hospitalization)
  Sender: FDA-Public Use
  Company Number: BR-ABBOTT-11P-020-0877288-00

PATIENT
  Sex: Male
  Weight: 74 kg

DRUGS (5)
  1. MODURETIC 5-50 [Concomitant]
     Indication: HYPERTENSION
     Dosage: 50 MG DAILY
  2. DORLOX [Concomitant]
     Indication: HYPERTENSION
     Dosage: 50 MG DAILY
  3. UNKNOWN FLU MEDICATIONS [Concomitant]
     Indication: PRODUCT USED FOR UNKNOWN INDICATION
  4. HUMIRA [Suspect]
     Indication: PSORIATIC ARTHROPATHY
     Route: 058
     Dates: start: 20101004, end: 20110701
  5. HUMIRA [Suspect]
     Route: 058

REACTIONS (4)
  - PSORIASIS [None]
  - ANAEMIA [None]
  - HAEMATOCHEZIA [None]
  - GASTRIC DISORDER [None]
